FAERS Safety Report 5929037-8 (Version None)
Quarter: 2008Q4

REPORT INFORMATION
  Report Type: 
  Country: None (occurrence: None)
  Receive Date: 20081024
  Receipt Date: 20081013
  Transmission Date: 20090506
  Serious: Yes (Other)
  Sender: FDA-Public Use
  Company Number: US-JNJFOC-20081003497

PATIENT
  Sex: Female
  Weight: 117.03 kg

DRUGS (1)
  1. TOPAMAX [Suspect]
     Indication: MIGRAINE

REACTIONS (1)
  - LOSS OF CONSCIOUSNESS [None]
